FAERS Safety Report 6138377-1 (Version None)
Quarter: 2009Q1

REPORT INFORMATION
  Report Type: 
  Country: None (occurrence: None)
  Receive Date: 20090327
  Receipt Date: 20090327
  Transmission Date: 20090719
  Serious: No
  Sender: FDA-Public Use
  Company Number: None

PATIENT
  Sex: Female
  Weight: 82.7 kg

DRUGS (5)
  1. CISPLATIN [Suspect]
     Dosage: 150 MG
  2. ETOPOSIDE [Suspect]
     Dosage: 570 MG
  3. CARDIZEM [Concomitant]
  4. LIPITOR [Concomitant]
  5. NEXIUM [Concomitant]

REACTIONS (1)
  - NEUTROPENIA [None]
